FAERS Safety Report 7637021-1 (Version None)
Quarter: 2011Q3

REPORT INFORMATION
  Report Type: 
  Country: None (occurrence: None)
  Receive Date: 20110726
  Receipt Date: 20110722
  Transmission Date: 20111222
  Serious: Yes (Other)
  Sender: FDA-Public Use
  Company Number: US-PFIZER INC-2011137542

PATIENT
  Sex: Female
  Weight: 70.295 kg

DRUGS (3)
  1. METFORMIN [Concomitant]
     Indication: DIABETES MELLITUS
     Dosage: 2500 MG, UNK
  2. LIPITOR [Suspect]
     Indication: BLOOD CHOLESTEROL INCREASED
     Dosage: 40 MG, UNK
     Route: 048
     Dates: start: 20110608, end: 20110611
  3. DIAZEPAM [Concomitant]
     Indication: HYPERTENSION
     Dosage: 180 MG, UNK

REACTIONS (2)
  - HEART RATE DECREASED [None]
  - HYPOTENSION [None]
